FAERS Safety Report 7631375-8 (Version None)
Quarter: 2011Q3

REPORT INFORMATION
  Report Type: 
  Country: None (occurrence: None)
  Receive Date: 20110725
  Receipt Date: 20110719
  Transmission Date: 20111222
  Serious: Yes (Other)
  Sender: FDA-Public Use
  Company Number: US-BAYER-2011-051523

PATIENT
  Age: 37 Year
  Sex: Female
  Weight: 57.596 kg

DRUGS (1)
  1. MIRENA [Suspect]
     Indication: PRODUCT USED FOR UNKNOWN INDICATION
     Dosage: 20 ?G, UNK
     Route: 015
     Dates: start: 20110609, end: 20110613

REACTIONS (2)
  - VAGINAL HAEMORRHAGE [None]
  - PELVIC PAIN [None]
